FAERS Safety Report 9846610 (Version 2)
Quarter: 2014Q1

REPORT INFORMATION
  Report Type: Report from Study
  Country: US (occurrence: US)
  Receive Date: 20140127
  Receipt Date: 20140127
  Transmission Date: 20141002
  Serious: Yes (Other)
  Sender: FDA-Public Use
  Company Number: PHEH2013US021713

PATIENT
  Age: 50 Year
  Sex: Female
  Weight: 61.22 kg

DRUGS (5)
  1. GILENYA [Suspect]
     Indication: MULTIPLE SCLEROSIS
     Dosage: 0.5 MG, QD
     Route: 048
     Dates: start: 20131001
  2. BUPROPION [Concomitant]
     Dosage: 100 MG, QD
     Route: 048
  3. KLONOPIN [Concomitant]
     Dosage: 1 MG, QHS
     Route: 048
  4. LITHIUM [Concomitant]
     Dosage: 300 MG, BID
     Route: 048
  5. SEROQUEL [Concomitant]
     Dosage: 25 MG, QHS
     Route: 048

REACTIONS (1)
  - Blood thyroid stimulating hormone decreased [Unknown]
